FAERS Safety Report 14284624 (Version 1)
Quarter: 2017Q4

REPORT INFORMATION
  Report Type: Spontaneous
  Country: DE (occurrence: DE)
  Receive Date: 20171214
  Receipt Date: 20171214
  Transmission Date: 20180321
  Serious: Yes (Other)
  Sender: FDA-Public Use
  Company Number: DE-JNJFOC-20171208980

PATIENT

DRUGS (5)
  1. CYCLOPHOSPHAMIDE. [Suspect]
     Active Substance: CYCLOPHOSPHAMIDE
     Indication: PRIMARY AMYLOIDOSIS
     Dosage: DAY 1
     Route: 065
  2. DEXAMETHASONE. [Suspect]
     Active Substance: DEXAMETHASONE
     Indication: PRIMARY AMYLOIDOSIS
     Dosage: DAYS 1 TO 4
     Route: 048
  3. CIPROFLOXACIN. [Concomitant]
     Active Substance: CIPROFLOXACIN
     Indication: INFECTION PROPHYLAXIS
     Dosage: AT DAY 8
     Route: 048
  4. GRANULOCYTE COLONY STIMULATING FACTOR [Suspect]
     Active Substance: GRANULOCYTE COLONY-STIMULATING FACTOR NOS
     Indication: PRIMARY AMYLOIDOSIS
     Dosage: STARTING AT DAY 8
     Route: 065
  5. DOXORUBICIN HYDROCHLORIDE. [Suspect]
     Active Substance: DOXORUBICIN HYDROCHLORIDE
     Indication: PRIMARY AMYLOIDOSIS
     Dosage: DAYS 1 TO 4
     Route: 065

REACTIONS (26)
  - Pulmonary oedema [Unknown]
  - Device related infection [Unknown]
  - Jugular vein thrombosis [Unknown]
  - Hypotension [Unknown]
  - Hypertension [Unknown]
  - Syncope [Unknown]
  - Tachycardia [Unknown]
  - Diarrhoea [Unknown]
  - Mucosal inflammation [Unknown]
  - Tinnitus [Unknown]
  - Product use in unapproved indication [Unknown]
  - Pulmonary embolism [Unknown]
  - Leukopenia [Unknown]
  - Cystitis [Unknown]
  - Dizziness [Unknown]
  - Thrombocytopenia [Unknown]
  - Fatigue [Unknown]
  - Off label use [Unknown]
  - Neutropenia [Unknown]
  - Pyrexia [Unknown]
  - Atrial flutter [Unknown]
  - Otitis externa [Unknown]
  - Adverse event [Unknown]
  - Nausea [Unknown]
  - Chest pain [Unknown]
  - Palpitations [Unknown]
